FAERS Safety Report 5508679-8 (Version None)
Quarter: 2007Q4

REPORT INFORMATION
  Report Type: 
  Country: None (occurrence: None)
  Receive Date: 20071107
  Receipt Date: 20071101
  Transmission Date: 20080405
  Serious: Yes (Hospitalization)
  Sender: FDA-Public Use
  Company Number: SE-AVENTIS-200720101GDDC

PATIENT
  Age: 89 Year
  Sex: Female

DRUGS (6)
  1. MINIRIN [Suspect]
     Dates: end: 20070719
  2. LERCANIDIPINE HYDROCHLORIDE [Concomitant]
  3. ENALAPRIL MALEATE [Concomitant]
  4. ZOPICLONE [Concomitant]
  5. FERROUS SULFATE TAB [Concomitant]
     Route: 048
  6. VITAMIN B-COMPLEX, INCL COMBINATIONS [Concomitant]
     Route: 048

REACTIONS (2)
  - HYPONATRAEMIA [None]
  - INAPPROPRIATE ANTIDIURETIC HORMONE SECRETION [None]
